FAERS Safety Report 5430285-4 (Version None)
Quarter: 2007Q3

REPORT INFORMATION
  Report Type: 
  Country: None (occurrence: None)
  Receive Date: 20070731
  Receipt Date: 20070416
  Transmission Date: 20080115
  Serious: No
  Sender: FDA-Public Use
  Company Number: US200704003561

PATIENT
  Age: 61 Year
  Sex: Male

DRUGS (8)
  1. BYETTA [Suspect]
     Indication: DIABETES MELLITUS
     Dosage: 5 UG, DAILY (1/D), SUBCUTANEOUS
     Route: 058
     Dates: start: 20070301
  2. CARDURA [Concomitant]
  3. ZOCOR [Concomitant]
  4. COREG [Concomitant]
  5. GLUCOVANCE [Concomitant]
  6. AMARYL [Concomitant]
  7. ASPIRIN [Concomitant]
  8. NEXIUM [Concomitant]

REACTIONS (7)
  - BLOOD GLUCOSE [None]
  - DECREASED APPETITE [None]
  - DREAMY STATE [None]
  - HYPOAESTHESIA ORAL [None]
  - LETHARGY [None]
  - MUSCLE TWITCHING [None]
  - NAUSEA [None]
